FAERS Safety Report 9202331 (Version 2)
Quarter: 2013Q2

REPORT INFORMATION
  Report Type: Spontaneous
  Country: CN (occurrence: CN)
  Receive Date: 20130401
  Receipt Date: 20130409
  Transmission Date: 20140414
  Serious: Yes (Other)
  Sender: FDA-Public Use
  Company Number: PHHY2013CN029787

PATIENT
  Age: 29 Year
  Sex: Female
  Weight: 73 kg

DRUGS (12)
  1. MAGNESIUM SULFATE [Suspect]
     Dosage: 1.6 G, QH
  2. CALCIUM GLUCONATE [Suspect]
     Dosage: 1 G
  3. CALCIUM GLUCONATE [Suspect]
     Dosage: 2 G
  4. REMIFENTANIL [Suspect]
     Indication: GENERAL ANAESTHESIA
     Dosage: 50 UG
  5. PROPOFOL [Suspect]
     Indication: GENERAL ANAESTHESIA
     Dosage: 100 MG
  6. ROCURONIUM BROMIDE [Suspect]
     Indication: GENERAL ANAESTHESIA
     Dosage: 40 MG, UNK
  7. FUROSEMIDE [Suspect]
     Dosage: 10 MG
  8. ISOFLURANE [Suspect]
     Indication: MECHANICAL VENTILATION
  9. SUFENTANIL [Concomitant]
     Dosage: 15 UG
     Route: 042
  10. TRAMADOL [Concomitant]
     Indication: SEDATION
  11. TRAMADOL [Concomitant]
     Indication: ANALGESIC THERAPY
  12. LACTATED RINGER^S [Concomitant]
     Dosage: 800 ML

REACTIONS (12)
  - Metabolic acidosis [Unknown]
  - Respiratory acidosis [Unknown]
  - Toxicity to various agents [Unknown]
  - Hypermagnesaemia [Unknown]
  - Hypotension [Unknown]
  - Hyporeflexia [Unknown]
  - Delayed recovery from anaesthesia [Unknown]
  - Loss of consciousness [Unknown]
  - Unresponsive to stimuli [Unknown]
  - Fatigue [Unknown]
  - Somnolence [Recovering/Resolving]
  - Maternal exposure during pregnancy [Unknown]
